FAERS Safety Report 6709086-2 (Version None)
Quarter: 2010Q2

REPORT INFORMATION
  Report Type: 
  Country: None (occurrence: None)
  Receive Date: 20100429
  Receipt Date: 20100415
  Transmission Date: 20101027
  Serious: Yes (Hospitalization)
  Sender: FDA-Public Use
  Company Number: B0647671A

PATIENT
  Age: 53 Year
  Sex: Female

DRUGS (6)
  1. ORLISTAT [Suspect]
     Dosage: 360 MG / PER DAY /
  2. ORLISTAT [Suspect]
  3. SITAGLIPTIN PHOSPHATE TABLET (SITAGLIPTIN PHOSPHATE) [Suspect]
     Indication: TYPE 2 DIABETES MELLITUS
     Dosage: 100 MG / PER DAY / ORAL
     Route: 048
     Dates: start: 20090107, end: 20090623
  4. GLICLAZIDE [Concomitant]
  5. LISINOPRIL [Concomitant]
  6. METFORMIN HYDROCHLORIDE [Concomitant]

REACTIONS (1)
  - PANCREATITIS ACUTE [None]
